FAERS Safety Report 11984795 (Version 2)
Quarter: 2016Q1

REPORT INFORMATION
  Report Type: Other
  Country: US (occurrence: US)
  Receive Date: 20160201
  Receipt Date: 20160216
  Transmission Date: 20160526
  Serious: Yes (Hospitalization, Other)
  Sender: FDA-Public Use
  Company Number: US-SHIRE-US201600777

PATIENT
  Age: 62 Year
  Sex: Male

DRUGS (2)
  1. CINRYZE [Suspect]
     Active Substance: HUMAN C1-ESTERASE INHIBITOR
     Indication: HEREDITARY ANGIOEDEMA
     Dosage: 1500 UNITS, OTHER(EVERY 3 DAYS)
     Route: 042
     Dates: start: 20120120
  2. CINRYZE [Suspect]
     Active Substance: HUMAN C1-ESTERASE INHIBITOR
     Indication: PROPHYLAXIS

REACTIONS (8)
  - Swelling [Unknown]
  - Scrotal swelling [Recovered/Resolved]
  - Penile swelling [Recovered/Resolved]
  - Localised oedema [Recovered/Resolved]
  - Local swelling [Recovered/Resolved]
  - Prescribed overdose [Not Recovered/Not Resolved]
  - Lymphoedema [Unknown]
  - Infection [Unknown]

NARRATIVE: CASE EVENT DATE: 20120120
